FAERS Safety Report 9925055 (Version 1)
Quarter: 2014Q1

REPORT INFORMATION
  Report Type: Spontaneous
  Country: CA (occurrence: CA)
  Receive Date: 20140226
  Receipt Date: 20140226
  Transmission Date: 20141002
  Serious: Yes (Other)
  Sender: FDA-Public Use
  Company Number: CA-WATSON-2014-02961

PATIENT
  Age: 29 Year
  Sex: Female

DRUGS (9)
  1. BUPROPION HYDROCHLORIDE (UNKNOWN) [Suspect]
     Indication: DRUG ABUSE
     Dosage: 1200 MG, DAILY
     Route: 042
  2. RITONAVIR [Concomitant]
     Indication: ANTIVIRAL TREATMENT
     Dosage: UNK
     Route: 065
  3. ATAZANAVIR [Concomitant]
     Indication: ANTIVIRAL TREATMENT
     Dosage: UNK
     Route: 065
  4. EMTRICITABINE W/TENOFOVIR [Concomitant]
     Indication: ANTIVIRAL TREATMENT
     Dosage: UNK
     Route: 065
  5. OLANZAPINE [Concomitant]
     Indication: PRODUCT USED FOR UNKNOWN INDICATION
     Dosage: 5 MG, BID
     Route: 048
  6. LITHIUM [Concomitant]
     Indication: PRODUCT USED FOR UNKNOWN INDICATION
     Dosage: 600 MG, DAILY
     Route: 048
  7. VENLAFAXINE [Concomitant]
     Indication: PRODUCT USED FOR UNKNOWN INDICATION
     Dosage: 200 MG, DAILY
     Route: 065
  8. DIVALPROEX [Concomitant]
     Indication: PRODUCT USED FOR UNKNOWN INDICATION
     Dosage: 750 MG, DAILY
     Route: 048
  9. BUPRENORPHINE W/NALOXONE [Concomitant]
     Indication: PRODUCT USED FOR UNKNOWN INDICATION
     Dosage: 24 MG, DAILY
     Route: 048

REACTIONS (6)
  - Drug withdrawal syndrome [Unknown]
  - Irritability [Unknown]
  - Affect lability [Unknown]
  - Depressed mood [Unknown]
  - Drug abuse [Unknown]
  - Intentional overdose [Unknown]
